FAERS Safety Report 19952016 (Version 2)
Quarter: 2021Q4

REPORT INFORMATION
  Report Type: Spontaneous
  Country: NL (occurrence: NL)
  Receive Date: 20211013
  Receipt Date: 20211103
  Transmission Date: 20220303
  Serious: Yes (Hospitalization)
  Sender: FDA-Public Use
  Company Number: NL-TEVA-2021-NL-1963767

PATIENT
  Age: 83 Year
  Sex: Female
  Weight: 92 kg

DRUGS (5)
  1. FLUCONAZOLE [Interacting]
     Active Substance: FLUCONAZOLE
     Indication: Candida infection
     Dosage: 800 MILLIGRAM DAILY; LOADING DOSE
     Route: 048
  2. FLUCONAZOLE [Interacting]
     Active Substance: FLUCONAZOLE
     Dosage: 400 MILLIGRAM DAILY;
     Route: 048
  3. RIFAMPIN [Interacting]
     Active Substance: RIFAMPIN
     Indication: Antibiotic therapy
     Dosage: 900 MILLIGRAM DAILY;
     Route: 048
  4. CEFTAZIDIME [Concomitant]
     Active Substance: CEFTAZIDIME
     Indication: Antibiotic therapy
     Route: 065
  5. VANCOMYCIN [Concomitant]
     Active Substance: VANCOMYCIN
     Indication: Antibiotic therapy
     Route: 065

REACTIONS (2)
  - Renal impairment [Recovered/Resolved]
  - Drug interaction [Unknown]
